FAERS Safety Report 6207330-1 (Version None)
Quarter: 2009Q2

REPORT INFORMATION
  Report Type: 
  Country: None (occurrence: None)
  Receive Date: 20090528
  Receipt Date: 20090504
  Transmission Date: 20091009
  Serious: Yes (Other)
  Sender: FDA-Public Use
  Company Number: US-PFIZER INC-2009208027

PATIENT
  Sex: Female

DRUGS (4)
  1. HYDROCHLOROTHIAZIDE [Suspect]
  2. LISINOPRIL [Suspect]
  3. DEPO-MEDROL [Suspect]
  4. KEFLEX [Suspect]

REACTIONS (9)
  - COUGH [None]
  - DEHYDRATION [None]
  - DRUG HYPERSENSITIVITY [None]
  - DRY THROAT [None]
  - DYSPHAGIA [None]
  - DYSPHONIA [None]
  - NASAL DRYNESS [None]
  - PHARYNGEAL MASS [None]
  - SNEEZING [None]
